FAERS Safety Report 14288315 (Version 2)
Quarter: 2017Q4

REPORT INFORMATION
  Report Type: Report from Study
  Country: US (occurrence: US)
  Receive Date: 20171215
  Receipt Date: 20171226
  Transmission Date: 20180321
  Serious: Yes (Other)
  Sender: FDA-Public Use
  Company Number: US-AMGEN-USASL2017184129

PATIENT
  Age: 67 Year
  Sex: Female
  Weight: 79.37 kg

DRUGS (4)
  1. ENBREL [Suspect]
     Active Substance: ETANERCEPT
     Dosage: UNK UNK, QWK
     Route: 058
     Dates: start: 20171206
  2. METHOTREXATE. [Concomitant]
     Active Substance: METHOTREXATE
     Indication: PSORIASIS
     Dosage: 10 MG, QWK
     Dates: start: 200907
  3. ENBREL [Suspect]
     Active Substance: ETANERCEPT
     Indication: PSORIASIS
     Dosage: UNK UNK, QWK
     Route: 058
     Dates: start: 201209, end: 201711
  4. FOLIC ACID. [Concomitant]
     Active Substance: FOLIC ACID
     Indication: PSORIASIS
     Dosage: 1 MG, QD
     Dates: start: 200907

REACTIONS (1)
  - Bladder operation [Unknown]

NARRATIVE: CASE EVENT DATE: 20171116
